FAERS Safety Report 7704736-6 (Version None)
Quarter: 2011Q3

REPORT INFORMATION
  Report Type: 
  Country: None (occurrence: None)
  Receive Date: 20110823
  Receipt Date: 20110816
  Transmission Date: 20111222
  Serious: Yes (Other)
  Sender: FDA-Public Use
  Company Number: PHHY2011GB73332

PATIENT
  Age: 61 Year
  Sex: Female
  Weight: 79.59 kg

DRUGS (11)
  1. CARMELLOSE SODIUM [Concomitant]
     Dosage: UNK
     Dates: start: 20110427
  2. MIGRALEVE [Concomitant]
     Dosage: UNK
     Dates: start: 20110427
  3. SODIUM ALGINATE [Concomitant]
     Dosage: UNK
     Dates: start: 20110524
  4. LUMIGAN [Concomitant]
     Dosage: UNK
     Dates: start: 20110427
  5. RANITIDINE [Suspect]
     Dates: start: 20110524
  6. PROPRANOLOL [Concomitant]
     Dosage: UNK
     Dates: start: 20110427
  7. OMEPRAZOLE [Concomitant]
     Dosage: UNK
     Dates: start: 20110805
  8. AMOXICILLIN [Concomitant]
     Dosage: UNK
     Dates: start: 20110805
  9. ATORVASTATIN [Concomitant]
     Dosage: UNK
     Dates: start: 20110427
  10. FLOXACILLIN SODIUM [Concomitant]
     Dosage: UNK
     Dates: start: 20110712, end: 20110719
  11. OTOSPORIN [Concomitant]
     Dosage: UNK
     Dates: start: 20110805

REACTIONS (2)
  - VISION BLURRED [None]
  - INTRAOCULAR PRESSURE INCREASED [None]
